FAERS Safety Report 24958939 (Version 1)
Quarter: 2025Q1

REPORT INFORMATION
  Report Type: Other
  Country: SE (occurrence: SE)
  Receive Date: 20250212
  Receipt Date: 20250212
  Transmission Date: 20250409
  Serious: Yes (Hospitalization)
  Sender: ESJAY PHARMA
  Company Number: SE-ESJAY PHARMA-000145

PATIENT

DRUGS (1)
  1. SOTALOL [Suspect]
     Active Substance: SOTALOL
     Indication: Supraventricular tachycardia
     Route: 048

REACTIONS (2)
  - Selective eating disorder [Unknown]
  - Fatigue [Unknown]
